FAERS Safety Report 13455730 (Version 1)
Quarter: 2017Q2

REPORT INFORMATION
  Report Type: Spontaneous
  Country: US (occurrence: US)
  Receive Date: 20170418
  Receipt Date: 20170418
  Transmission Date: 20170830
  Serious: Yes (Hospitalization)
  Sender: FDA-Public Use
  Company Number: None

PATIENT
  Age: 53 Year
  Sex: Male

DRUGS (1)
  1. LITHIUM. [Suspect]
     Active Substance: LITHIUM
     Indication: DEPRESSION
     Route: 048

REACTIONS (4)
  - Movement disorder [None]
  - Insomnia [None]
  - Toxicity to various agents [None]
  - Tremor [None]

NARRATIVE: CASE EVENT DATE: 20170412
